FAERS Safety Report 23181088 (Version 2)
Quarter: 2023Q4

REPORT INFORMATION
  Report Type: Report from Study
  Country: MX (occurrence: MX)
  Receive Date: 20231114
  Receipt Date: 20231211
  Transmission Date: 20240110
  Serious: Yes (Other)
  Sender: FDA-Public Use
  Company Number: MX-SA-SAC20231110001361

PATIENT
  Age: 60 Year
  Sex: Female

DRUGS (1)
  1. INSULIN GLARGINE\LIXISENATIDE [Suspect]
     Active Substance: INSULIN GLARGINE\LIXISENATIDE
     Indication: Type 2 diabetes mellitus
     Dosage: 20 IU, QD
     Route: 058
     Dates: start: 20230926

REACTIONS (3)
  - Cataract [Unknown]
  - Neuropathy peripheral [Unknown]
  - Onychomadesis [Unknown]

NARRATIVE: CASE EVENT DATE: 20230101
